FAERS Safety Report 17356789 (Version 1)
Quarter: 2020Q1

REPORT INFORMATION
  Report Type: Report from Study
  Country: US (occurrence: US)
  Receive Date: 20200131
  Receipt Date: 20200131
  Transmission Date: 20200409
  Serious: Yes (Hospitalization, Disabling, Other)
  Sender: FDA-Public Use
  Company Number: US-BAUSCH-BL-2020-002891

PATIENT
  Sex: Male

DRUGS (17)
  1. LANOXIN [Concomitant]
     Active Substance: DIGOXIN
     Indication: PRODUCT USED FOR UNKNOWN INDICATION
     Dosage: STRENGTH: 125 MCG (0.125 MG), BY MOUTH
     Route: 048
  2. POTASSIUM CHLORIDE. [Concomitant]
     Active Substance: POTASSIUM CHLORIDE
     Indication: PRODUCT USED FOR UNKNOWN INDICATION
     Dosage: EXTENDED RELEASE, SIZE: 20 MEQ, BY MOUTH
     Route: 048
  3. AMOXIL [Concomitant]
     Active Substance: AMOXICILLIN
     Indication: PRODUCT USED FOR UNKNOWN INDICATION
     Dosage: TAKE FOUR CAPSULES BY MOUTH ONE HOUR BEFORE APPOINTMENT
     Route: 048
  4. BUMEX [Concomitant]
     Active Substance: BUMETANIDE
     Indication: PRODUCT USED FOR UNKNOWN INDICATION
     Dosage: INCREASE TO 3 TIMES AS NEEDED
  5. ROXICODONE [Concomitant]
     Active Substance: OXYCODONE HYDROCHLORIDE
     Indication: PAIN
     Dosage: BY MOUTH, AS NEEDED, MAXIMUM DAILY DOSE 60 MG
     Route: 048
  6. CYMBALTA [Concomitant]
     Active Substance: DULOXETINE HYDROCHLORIDE
     Indication: PRODUCT USED FOR UNKNOWN INDICATION
     Dosage: DELAYED RELEASE (DR/EC), BY MOUTH
     Route: 048
  7. ATARAX [Concomitant]
     Active Substance: HYDROXYZINE HYDROCHLORIDE
     Indication: PRURITUS
     Dosage: BY MOUTH, AS NEEDED
     Route: 048
  8. LACTULOSE. [Concomitant]
     Active Substance: LACTULOSE
     Indication: PRODUCT USED FOR UNKNOWN INDICATION
  9. MAG-OX [Concomitant]
     Active Substance: MAGNESIUM OXIDE
     Indication: PRODUCT USED FOR UNKNOWN INDICATION
     Dosage: STRENGTH: 400 MG (241.3 MG), BY MOUTH
     Route: 048
  10. LOPRESSOR [Concomitant]
     Active Substance: METOPROLOL TARTRATE
     Indication: PRODUCT USED FOR UNKNOWN INDICATION
     Dosage: BY MOUTH EVERY MORNING
     Route: 048
  11. LOPRESSOR [Concomitant]
     Active Substance: METOPROLOL TARTRATE
     Dosage: TABLET SIZE: 50 MG, BY MOUTH EVERY EVENING
     Route: 048
  12. CHRONULAC [Concomitant]
     Active Substance: LACTULOSE
     Indication: PRODUCT USED FOR UNKNOWN INDICATION
     Dosage: STRENGTH: 10 GRAM/15 ML, TAKE 30 ML (20 GRAMS TOTAL) BY MOUTH
     Route: 048
  13. XIFAXAN [Suspect]
     Active Substance: RIFAXIMIN
     Indication: HEPATIC ENCEPHALOPATHY
     Dosage: AROUND OCT/2018
     Route: 048
     Dates: start: 2018
  14. ZAROXOLYN [Concomitant]
     Active Substance: METOLAZONE
     Indication: PRODUCT USED FOR UNKNOWN INDICATION
     Dosage: 1-3 TIMES DAILY
  15. THERAGRAN [Concomitant]
     Active Substance: VITAMINS
     Indication: PRODUCT USED FOR UNKNOWN INDICATION
  16. NARCAN [Concomitant]
     Active Substance: NALOXONE HYDROCHLORIDE
     Indication: PRODUCT USED FOR UNKNOWN INDICATION
     Dosage: SPRAY, NON-AEROSOL, STRENGTH:4 MG/ACTUATION, 1 SPRAY IN NOSE AS NEEDED FOR SUSPECTED OVERDOSE
     Route: 045
  17. GLYCOLAX [Concomitant]
     Active Substance: POLYETHYLENE GLYCOL 3350
     Indication: PRODUCT USED FOR UNKNOWN INDICATION
     Dosage: SIZE: 17 GRAM/DOSE

REACTIONS (14)
  - Hepatic cancer [Unknown]
  - Loss of personal independence in daily activities [Not Recovered/Not Resolved]
  - Inability to afford medication [Unknown]
  - Gout [Unknown]
  - Upper limb fracture [Unknown]
  - Varicose ulceration [Unknown]
  - Haemorrhage [Unknown]
  - Pain in extremity [Not Recovered/Not Resolved]
  - Atrial fibrillation [Unknown]
  - Fall [Unknown]
  - Anaemia [Unknown]
  - Cardiac failure [Unknown]
  - Cardiac cirrhosis [Unknown]
  - Arthritis [Unknown]
